FAERS Safety Report 19658630 (Version 5)
Quarter: 2022Q2

REPORT INFORMATION
  Report Type: Report from Study
  Country: US (occurrence: US)
  Receive Date: 20210805
  Receipt Date: 20220613
  Transmission Date: 20220720
  Serious: No
  Sender: FDA-Public Use
  Company Number: NVSC2021US169402

PATIENT
  Sex: Male

DRUGS (2)
  1. COSENTYX [Suspect]
     Active Substance: SECUKINUMAB
     Indication: Ankylosing spondylitis
     Dosage: 150 MG, QW,(EVERY WEEK TIMES 5 WEEK, LOADING DOSE, EVERY 4 WEEKS THEREAFTER)
     Route: 058
     Dates: start: 20210715
  2. COSENTYX [Suspect]
     Active Substance: SECUKINUMAB
     Dosage: 150 MG, QMO
     Route: 058

REACTIONS (7)
  - Anxiety [Unknown]
  - Nervousness [Unknown]
  - Abdominal pain [Unknown]
  - Diarrhoea [Unknown]
  - Injection site haemorrhage [Unknown]
  - Gastrointestinal disorder [Recovering/Resolving]
  - Device difficult to use [Unknown]
